FAERS Safety Report 24058008 (Version 1)
Quarter: 2024Q3

REPORT INFORMATION
  Report Type: Other
  Country: XG (occurrence: XG)
  Receive Date: 20240707
  Receipt Date: 20240707
  Transmission Date: 20241017
  Serious: Yes (Life-Threatening, Hospitalization, Other)
  Sender: B BRAUN
  Company Number: XG-B.Braun Medical Inc.-2158888

PATIENT
  Age: 49 Year
  Sex: Male

DRUGS (4)
  1. HEPARIN SODIUM IN DEXTROSE [Suspect]
     Active Substance: HEPARIN SODIUM
     Indication: Catheterisation cardiac
  2. ASPIRIN [Suspect]
     Active Substance: ASPIRIN
  3. IBUPROFEN [Concomitant]
     Active Substance: IBUPROFEN
  4. CLOPIDOGREL [Suspect]
     Active Substance: CLOPIDOGREL BISULFATE

REACTIONS (1)
  - Spontaneous splenic rupture [Recovering/Resolving]
